FAERS Safety Report 20589087 (Version 1)
Quarter: 2022Q1

REPORT INFORMATION
  Report Type: Spontaneous
  Country: FI (occurrence: FI)
  Receive Date: 20220314
  Receipt Date: 20220314
  Transmission Date: 20220423
  Serious: Yes (Other)
  Sender: FDA-Public Use
  Company Number: FI-UCBSA-2022006806

PATIENT
  Age: 29 Year
  Sex: Female

DRUGS (2)
  1. CETIRIZINE HYDROCHLORIDE [Suspect]
     Active Substance: CETIRIZINE HYDROCHLORIDE
     Indication: Product used for unknown indication
     Dosage: UNK
     Route: 065
     Dates: start: 202202
  2. CIMZIA [Suspect]
     Active Substance: CERTOLIZUMAB PEGOL
     Indication: Product used for unknown indication
     Dosage: UNK
     Route: 065
     Dates: start: 20220201

REACTIONS (11)
  - Angioedema [Unknown]
  - Urticaria [Recovering/Resolving]
  - Asthenia [Unknown]
  - Abdominal discomfort [Unknown]
  - Ear congestion [Unknown]
  - Swelling face [Unknown]
  - Nausea [Unknown]
  - Pharyngeal swelling [Unknown]
  - Ocular hyperaemia [Recovering/Resolving]
  - Photosensitivity reaction [Recovering/Resolving]
  - Lacrimation increased [Recovering/Resolving]

NARRATIVE: CASE EVENT DATE: 20220201
